FAERS Safety Report 12530045 (Version 1)
Quarter: 2016Q3

REPORT INFORMATION
  Report Type: Other
  Country: US (occurrence: US)
  Receive Date: 20160706
  Receipt Date: 20160706
  Transmission Date: 20161109
  Serious: Yes (Hospitalization)
  Sender: FDA-Public Use
  Company Number: US-NOVEL LABORATORIES, INC-2016-02921

PATIENT
  Age: 21 Year
  Sex: Female

DRUGS (4)
  1. MISOPROSTOL. [Suspect]
     Active Substance: MISOPROSTOL
     Indication: POSTPARTUM HAEMORRHAGE
     Route: 054
  2. PITOCIN [Concomitant]
     Active Substance: OXYTOCIN
     Indication: PRODUCT USED FOR UNKNOWN INDICATION
     Route: 030
  3. IBUPROFEN. [Concomitant]
     Active Substance: IBUPROFEN
     Indication: PRODUCT USED FOR UNKNOWN INDICATION
     Route: 065
  4. LIDOCAINE. [Concomitant]
     Active Substance: LIDOCAINE
     Indication: ANAESTHESIA
     Route: 065

REACTIONS (6)
  - Sinus tachycardia [Recovered/Resolved]
  - Toxicity to various agents [Unknown]
  - Hyperthermia [Recovered/Resolved]
  - Chills [Recovered/Resolved]
  - Encephalopathy [Recovered/Resolved]
  - Mental status changes [Recovered/Resolved]
